FAERS Safety Report 14558647 (Version 2)
Quarter: 2018Q1

REPORT INFORMATION
  Report Type: Spontaneous
  Country: DE (occurrence: DE)
  Receive Date: 20180221
  Receipt Date: 20180313
  Transmission Date: 20180509
  Serious: Yes (Other)
  Sender: FDA-Public Use
  Company Number: DE-ASTRAZENECA-2018SE19388

PATIENT
  Sex: Female

DRUGS (1)
  1. MIFLONIDE BREEZHALER [Suspect]
     Active Substance: BUDESONIDE
     Indication: PRODUCT USED FOR UNKNOWN INDICATION
     Dosage: 200 UG/INHAL, UNKNOWN (NON-AZ PRODUCT)
     Route: 055

REACTIONS (2)
  - Foreign body aspiration [Unknown]
  - Product physical issue [Unknown]
